FAERS Safety Report 7357466-7 (Version None)
Quarter: 2011Q1

REPORT INFORMATION
  Report Type: 
  Country: None (occurrence: None)
  Receive Date: 20110317
  Receipt Date: 20100921
  Transmission Date: 20110831
  Serious: Yes (Other)
  Sender: FDA-Public Use
  Company Number: US-BAYER-201027478NA

PATIENT
  Sex: Female
  Weight: 99.773 kg

DRUGS (9)
  1. VICODIN [Concomitant]
  2. IBUPROFEN [Concomitant]
     Dosage: UNK
     Dates: start: 20081223
  3. YAZ [Suspect]
     Indication: CONTRACEPTION
     Dosage: UNK UNK, UNK
     Route: 048
     Dates: start: 20080608, end: 20091001
  4. PLAN B [Concomitant]
     Dosage: UNK
     Dates: start: 20081208
  5. TYLENOL REGULAR [Concomitant]
  6. PEPTO-BISMOL [Concomitant]
  7. CLINDESSE [Concomitant]
     Dosage: UNK
     Dates: start: 20080707
  8. VALTREX [Concomitant]
     Dosage: UNK
     Dates: start: 20080717
  9. AMOXICILLIN [Concomitant]
     Dosage: UNK
     Dates: start: 20081223

REACTIONS (8)
  - PULMONARY EMBOLISM [None]
  - MYOCARDIAL INFARCTION [None]
  - CEREBROVASCULAR ACCIDENT [None]
  - DEEP VEIN THROMBOSIS [None]
  - CHOLECYSTITIS CHRONIC [None]
  - GALLBLADDER DISORDER [None]
  - PAIN [None]
  - CHOLELITHIASIS [None]
